FAERS Safety Report 6585107-5 (Version None)
Quarter: 2010Q1

REPORT INFORMATION
  Report Type: 
  Country: None (occurrence: None)
  Receive Date: 20100217
  Receipt Date: 20100208
  Transmission Date: 20100710
  Serious: Yes (Other)
  Sender: FDA-Public Use
  Company Number: US-PFIZER INC-2010016903

PATIENT
  Sex: Female

DRUGS (1)
  1. LIPITOR [Suspect]
     Dosage: 80 MG, DAILY
     Route: 048

REACTIONS (3)
  - CERVICAL VERTEBRAL FRACTURE [None]
  - DYSPHAGIA [None]
  - FALL [None]
